FAERS Safety Report 11512055 (Version 3)
Quarter: 2015Q4

REPORT INFORMATION
  Report Type: Spontaneous
  Country: FR (occurrence: FR)
  Receive Date: 20150916
  Receipt Date: 20151008
  Transmission Date: 20160304
  Serious: Yes (Disabling, Other)
  Sender: FDA-Public Use
  Company Number: FR-AUROBINDO-AUR-APL-2015-08214

PATIENT
  Age: 64 Year
  Sex: Female

DRUGS (4)
  1. ATENOLOL. [Concomitant]
     Active Substance: ATENOLOL
     Indication: HYPERTENSION
     Dosage: 50 MG, UNK
     Route: 065
  2. TRAMADOL ARROW TABLET [Suspect]
     Active Substance: TRAMADOL HYDROCHLORIDE
     Indication: EXOSTOSIS
  3. VALSARTAN. [Concomitant]
     Active Substance: VALSARTAN
     Indication: HYPERTENSION
     Dosage: 80 MG, UNK
     Route: 065
  4. TRAMADOL ARROW TABLET [Suspect]
     Active Substance: TRAMADOL HYDROCHLORIDE
     Indication: SCIATICA
     Dosage: 50 MG,1. 1 TO 4 TABLETS DAILY AS NEEDED IF PAIN
     Route: 048
     Dates: start: 20150831, end: 20150904

REACTIONS (7)
  - Paraesthesia [Recovered/Resolved]
  - Presyncope [Recovered/Resolved]
  - Nausea [Recovering/Resolving]
  - Headache [Recovered/Resolved]
  - Toxicity to various agents [Unknown]
  - Vertigo [Recovered/Resolved]
  - Diarrhoea [Recovering/Resolving]

NARRATIVE: CASE EVENT DATE: 20150904
